FAERS Safety Report 7546589-5 (Version None)
Quarter: 2011Q2

REPORT INFORMATION
  Report Type: 
  Country: None (occurrence: None)
  Receive Date: 20110614
  Receipt Date: 20110607
  Transmission Date: 20111010
  Serious: Yes (Other)
  Sender: FDA-Public Use
  Company Number: GB-ELI_LILLY_AND_COMPANY-GB201012001575

PATIENT
  Age: 72 Year
  Sex: Male
  Weight: 113 kg

DRUGS (7)
  1. BENDROFLUAZIDE [Concomitant]
  2. GLICLAZIDE [Concomitant]
  3. METFORMIN HCL [Concomitant]
     Dosage: UNK
  4. BYETTA [Suspect]
     Dosage: 10 UG, 2/D
     Route: 058
     Dates: start: 20091023
  5. RAMIPRIL [Concomitant]
  6. FELODIPINE [Concomitant]
  7. DOXAZOSIN MESYLATE [Concomitant]

REACTIONS (1)
  - COLORECTAL CANCER [None]
